FAERS Safety Report 11659112 (Version 1)
Quarter: 2015Q4

REPORT INFORMATION
  Report Type: Spontaneous
  Country: CN (occurrence: CN)
  Receive Date: 20151026
  Receipt Date: 20151026
  Transmission Date: 20160304
  Serious: Yes (Life-Threatening, Hospitalization)
  Sender: FDA-Public Use
  Company Number: CN-ROCHE-1649693

PATIENT
  Age: 3 Year
  Sex: Male
  Weight: 11 kg

DRUGS (3)
  1. STERILE WATER FOR INJECTION, USP [Concomitant]
     Route: 041
     Dates: start: 20150612, end: 20150612
  2. ROCEPHIN [Suspect]
     Active Substance: CEFTRIAXONE SODIUM
     Indication: INFECTION
     Route: 041
     Dates: start: 20150612, end: 20150612
  3. GLUCOSE [Concomitant]
     Active Substance: DEXTROSE
     Route: 041
     Dates: start: 20150612, end: 20150612

REACTIONS (2)
  - Vomiting [Recovering/Resolving]
  - Cardio-respiratory arrest [Recovering/Resolving]

NARRATIVE: CASE EVENT DATE: 20150612
